FAERS Safety Report 10198373 (Version 1)
Quarter: 2014Q2

REPORT INFORMATION
  Report Type: Spontaneous
  Country: US (occurrence: US)
  Receive Date: 20140527
  Receipt Date: 20140527
  Transmission Date: 20141212
  Serious: No
  Sender: FDA-Public Use
  Company Number: US-NOVEN-13US008120

PATIENT
  Sex: 0

DRUGS (1)
  1. DAYTRANA [Suspect]
     Indication: AUTISM
     Dosage: 15 MG, UNK
     Route: 062

REACTIONS (2)
  - Drug hypersensitivity [Unknown]
  - Off label use [Not Recovered/Not Resolved]
